FAERS Safety Report 7122785-6 (Version None)
Quarter: 2010Q4

REPORT INFORMATION
  Report Type: 
  Country: None (occurrence: None)
  Receive Date: 20101124
  Receipt Date: 20101111
  Transmission Date: 20110411
  Serious: Yes (Hospitalization, Other)
  Sender: FDA-Public Use
  Company Number: DE-CELGENEUS-062-21880-09062210

PATIENT
  Age: 84 Year
  Sex: Female
  Weight: 65 kg

DRUGS (7)
  1. REVLIMID [Suspect]
     Indication: MULTIPLE MYELOMA
     Route: 048
     Dates: start: 20081120
  2. REVLIMID [Suspect]
     Route: 048
     Dates: start: 20081218, end: 20090107
  3. REVLIMID [Suspect]
     Route: 048
     Dates: start: 20090109
  4. DEXAMETHASONE [Concomitant]
     Indication: MULTIPLE MYELOMA
     Route: 048
     Dates: start: 20081120
  5. DEXAMETHASONE [Concomitant]
     Route: 048
     Dates: start: 20090103, end: 20090106
  6. OMEPRAZOLE [Concomitant]
     Route: 065
     Dates: start: 20081120
  7. CLEXANE [Concomitant]
     Route: 058
     Dates: start: 20081120

REACTIONS (5)
  - ATRIAL FIBRILLATION [None]
  - FALL [None]
  - PANCYTOPENIA [None]
  - SKIN LACERATION [None]
  - SYNCOPE [None]
